FAERS Safety Report 6169518-8 (Version None)
Quarter: 2009Q2

REPORT INFORMATION
  Report Type: 
  Country: None (occurrence: None)
  Receive Date: 20090428
  Receipt Date: 20090421
  Transmission Date: 20091009
  Serious: Yes (Other)
  Sender: FDA-Public Use
  Company Number: US-JNJFOC-20090405562

PATIENT
  Sex: Female
  Weight: 38.56 kg

DRUGS (17)
  1. DURAGESIC-100 [Suspect]
     Indication: NEURALGIA
     Route: 062
  2. FLEXERIL [Concomitant]
     Indication: ARTHRITIS
     Route: 048
  3. NEXIUM [Concomitant]
     Indication: GASTRIC DISORDER
     Route: 048
  4. AMITIZA [Concomitant]
     Indication: GASTRIC DISORDER
     Route: 048
  5. DILANTIN [Concomitant]
     Indication: CONVULSION
     Route: 048
  6. PREDNISONE TAB [Concomitant]
     Indication: ARTHRITIS
     Route: 048
  7. SYNTHROID [Concomitant]
     Indication: THYROID DISORDER
     Route: 048
  8. LEXAPRO [Concomitant]
     Indication: DEPRESSION
     Route: 048
  9. CLONAZEPAM [Concomitant]
     Indication: SLEEP DISORDER
  10. GABAPENTIN [Concomitant]
     Indication: NEUROPATHY PERIPHERAL
     Route: 048
  11. PERCOCET [Concomitant]
     Indication: BREAKTHROUGH PAIN
     Dosage: 10/325 MG
     Route: 048
  12. RELAFEN [Concomitant]
     Indication: ARTHRITIS
     Route: 048
  13. LUMIGAN [Concomitant]
     Indication: GLAUCOMA
     Dosage: 1 DROP IN EACH EYE
     Route: 047
  14. COSOPT [Concomitant]
     Indication: GLAUCOMA
     Dosage: 1 DROP IN EACH EYE
     Route: 047
  15. ALIGN [Concomitant]
     Indication: GASTROINTESTINAL DISORDER
     Route: 048
  16. UNKNOWN DRUG [Concomitant]
     Indication: LUNG DISORDER
     Dosage: 1 PUFF A DAY ORAL INHALATION
     Route: 048
  17. COMBIVENT [Concomitant]
     Indication: LUNG DISORDER
     Dosage: 1 PUFF A DAY ORAL INHALATION
     Route: 048

REACTIONS (3)
  - CONFUSIONAL STATE [None]
  - FALL [None]
  - HALLUCINATION [None]
